FAERS Safety Report 4294126-3 (Version None)
Quarter: 2004Q1

REPORT INFORMATION
  Report Type: 
  Country: None (occurrence: None)
  Receive Date: 20040212
  Receipt Date: 20040212
  Transmission Date: 20041129
  Serious: Yes (Other)
  Sender: FDA-Public Use
  Company Number: None

PATIENT
  Age: 43 Year
  Sex: Male
  Weight: 88.4514 kg

DRUGS (4)
  1. DIPYRIDAMOLE [Suspect]
     Indication: CARDIAC STRESS TEST
     Dosage: 0.57 MG/KG IV
     Route: 042
     Dates: start: 20040108
  2. GABAPENTIN [Concomitant]
  3. TC-99M [Concomitant]
  4. SESTAMIBI [Concomitant]

REACTIONS (4)
  - BURNING SENSATION [None]
  - CHEST DISCOMFORT [None]
  - FLUSHING [None]
  - HYPOAESTHESIA [None]
